FAERS Safety Report 9773509 (Version 2)
Quarter: 2013Q4

REPORT INFORMATION
  Report Type: Spontaneous
  Country: JP (occurrence: None)
  Receive Date: 20131217
  Receipt Date: 20131226
  Transmission Date: 20140711
  Serious: Yes (Hospitalization)
  Sender: FDA-Public Use
  Company Number: SYM-2013-13964

PATIENT
  Age: 89 Year
  Sex: Female

DRUGS (3)
  1. HERBESSER [Suspect]
     Indication: HYPERTENSION
     Dosage: 360 MG, DAILY, ORAL
     Route: 048
  2. AMLODIPINE BESILATE [Suspect]
     Indication: HYPERTENSION
     Dosage: 5 MG, DAILY, ORAL
     Route: 048
  3. IFENPRODIL TARTRATE [Suspect]
     Indication: PRODUCT USED FOR UNKNOWN INDICATION
     Dosage: 240 MG, DAILY, ORAL
     Route: 048

REACTIONS (6)
  - Blood potassium decreased [None]
  - Blood glucose increased [None]
  - Hypotension [None]
  - Toxicity to various agents [None]
  - Circulatory collapse [None]
  - Body temperature decreased [None]
